FAERS Safety Report 21608970 (Version 2)
Quarter: 2022Q4

REPORT INFORMATION
  Report Type: Spontaneous
  Country: US (occurrence: US)
  Receive Date: 20221117
  Receipt Date: 20221212
  Transmission Date: 20230112
  Serious: No
  Sender: FDA-Public Use
  Company Number: US-AMGEN-USASP2022193191

PATIENT
  Age: 86 Year
  Sex: Female

DRUGS (1)
  1. REPATHA [Suspect]
     Active Substance: EVOLOCUMAB
     Indication: Hypercholesterolaemia
     Dosage: 140 MILLIGRAM, Q2WK
     Route: 058
     Dates: start: 20221031

REACTIONS (7)
  - Hypophagia [Unknown]
  - Weight decreased [Not Recovered/Not Resolved]
  - Abdominal discomfort [Recovered/Resolved]
  - Dyspepsia [Unknown]
  - Injection site reaction [Unknown]
  - Nausea [Recovered/Resolved]
  - Hypersensitivity [Unknown]

NARRATIVE: CASE EVENT DATE: 20220101
